FAERS Safety Report 20566600 (Version 1)
Quarter: 2022Q1

REPORT INFORMATION
  Report Type: Spontaneous
  Country: US (occurrence: US)
  Receive Date: 20220308
  Receipt Date: 20220308
  Transmission Date: 20220424
  Serious: No
  Sender: FDA-Public Use
  Company Number: US-HORIZON THERAPEUTICS-HZN-2021-005224

PATIENT

DRUGS (1)
  1. PENNSAID [Suspect]
     Active Substance: DICLOFENAC SODIUM
     Indication: Pain in extremity
     Route: 061

REACTIONS (6)
  - Peripheral swelling [Not Recovered/Not Resolved]
  - Erythema [Not Recovered/Not Resolved]
  - Skin exfoliation [Not Recovered/Not Resolved]
  - Induration [Not Recovered/Not Resolved]
  - Nausea [Not Recovered/Not Resolved]
  - Off label use [Not Recovered/Not Resolved]
